FAERS Safety Report 16154138 (Version 4)
Quarter: 2019Q4

REPORT INFORMATION
  Report Type: Report from Study
  Country: AT (occurrence: AT)
  Receive Date: 20190403
  Receipt Date: 20191202
  Transmission Date: 20200122
  Serious: Yes (Hospitalization, Other)
  Sender: FDA-Public Use
  Company Number: AT-TAKEDA-2019TUS018546

PATIENT
  Sex: Female

DRUGS (5)
  1. ANAEROBEX [Concomitant]
     Active Substance: METRONIDAZOLE
     Dosage: UNK
  2. APREDNISLON [Concomitant]
     Active Substance: PREDNISOLONE
     Dosage: UNK
  3. VEDOLIZUMAB [Suspect]
     Active Substance: VEDOLIZUMAB
     Indication: COLITIS ULCERATIVE
     Dosage: UNK
     Route: 042
     Dates: start: 20170727
  4. MESAGRAN [Concomitant]
     Active Substance: MESALAMINE
     Dosage: UNK
  5. SALOFALK                           /00747601/ [Concomitant]
     Active Substance: MESALAMINE
     Dosage: UNK
     Dates: start: 20190218

REACTIONS (2)
  - Subileus [Recovered/Resolved]
  - Pyoderma gangrenosum [Recovered/Resolved]

NARRATIVE: CASE EVENT DATE: 20190218
